FAERS Safety Report 21362897 (Version 1)
Quarter: 2022Q3

REPORT INFORMATION
  Report Type: Report from Study
  Country: IT (occurrence: None)
  Receive Date: 20220922
  Receipt Date: 20220922
  Transmission Date: 20221027
  Serious: Yes (Other)
  Sender: FDA-Public Use
  Company Number: IT-ROCHE-3182792

PATIENT
  Age: 52 Year
  Sex: Female
  Weight: 61 kg

DRUGS (4)
  1. ATEZOLIZUMAB [Suspect]
     Active Substance: ATEZOLIZUMAB
     Indication: Cervix cancer metastatic
     Dosage: LAST DATE OF ADMINISTRATION: 02/DEC/2021
     Route: 041
     Dates: start: 20210122
  2. BEVACIZUMAB [Suspect]
     Active Substance: BEVACIZUMAB
     Indication: Cervix cancer metastatic
     Dosage: LAST DATE OF ADMINISTRATION: 02/DEC/2021
     Route: 042
     Dates: start: 20210122
  3. PACLITAXEL [Suspect]
     Active Substance: PACLITAXEL
     Indication: Cervix cancer metastatic
     Dosage: UNIT DOSE: 223, LAST ADMINISTERED ON : 18/MAY/2021
     Route: 042
     Dates: start: 20210122
  4. CISPLATIN [Suspect]
     Active Substance: CISPLATIN
     Indication: Cervix cancer metastatic
     Dosage: LAST ADMINISTERED ON: 16/MAR/2021
     Route: 042
     Dates: start: 20210122

REACTIONS (1)
  - Hepatotoxicity [Not Recovered/Not Resolved]

NARRATIVE: CASE EVENT DATE: 20211223
